FAERS Safety Report 9753708 (Version 2)
Quarter: 2013Q4

REPORT INFORMATION
  Report Type: Spontaneous
  Country: US (occurrence: US)
  Receive Date: 20131213
  Receipt Date: 20131213
  Transmission Date: 20140711
  Serious: No
  Sender: FDA-Public Use
  Company Number: US-GILEAD-2009-0026162

PATIENT
  Sex: Female
  Weight: 58.97 kg

DRUGS (14)
  1. LETAIRIS [Suspect]
     Indication: PULMONARY ARTERIAL HYPERTENSION
     Route: 048
     Dates: start: 20091023
  2. REVATIO [Concomitant]
  3. COUMADIN [Concomitant]
  4. WARFARIN [Concomitant]
  5. FUROSEMIDE [Concomitant]
  6. DIGOXIN [Concomitant]
  7. NASONEX [Concomitant]
  8. SK-TETRACYCLINE [Concomitant]
  9. SIMVASTATIN [Concomitant]
  10. POTASSIUM CL [Concomitant]
  11. ASCORBIC ACID [Concomitant]
  12. VITAMIN E [Concomitant]
  13. ALLEGRA [Concomitant]
  14. FLOLAN [Concomitant]

REACTIONS (2)
  - Swelling face [Recovered/Resolved]
  - Eye oedema [Recovered/Resolved]
